FAERS Safety Report 6955403-8 (Version None)
Quarter: 2010Q3

REPORT INFORMATION
  Report Type: 
  Country: None (occurrence: None)
  Receive Date: 20100830
  Receipt Date: 20100716
  Transmission Date: 20110219
  Serious: No
  Sender: FDA-Public Use
  Company Number: US-BRISTOL-MYERS SQUIBB COMPANY-15193741

PATIENT
  Age: 81 Year
  Sex: Male

DRUGS (2)
  1. SINEMET [Suspect]
  2. COUMADIN [Suspect]

REACTIONS (1)
  - VOMITING [None]
